FAERS Safety Report 10228012 (Version 1)
Quarter: 2014Q2

REPORT INFORMATION
  Report Type: Spontaneous
  Country: AU (occurrence: AU)
  Receive Date: 20140610
  Receipt Date: 20140610
  Transmission Date: 20141212
  Serious: Yes (Other)
  Sender: FDA-Public Use
  Company Number: PHHY2014AU070617

PATIENT
  Sex: Female

DRUGS (8)
  1. CICLOSPORIN [Suspect]
     Dosage: UNK
     Route: 064
  2. PREDNISONE [Suspect]
     Dosage: UNK
     Route: 064
  3. PARACETAMOL [Suspect]
     Dosage: UNK
     Route: 064
  4. PROMETHAZINE [Suspect]
     Dosage: UNK
     Route: 064
  5. CEPHALEXIN [Suspect]
     Route: 064
  6. N ACETYL CYSTEINE [Suspect]
     Route: 064
  7. DEXTROSE [Suspect]
     Route: 064
  8. ANTIEMETICS [Suspect]
     Route: 064

REACTIONS (2)
  - Premature baby [Unknown]
  - Foetal exposure during pregnancy [Unknown]
